FAERS Safety Report 19784528 (Version 1)
Quarter: 2021Q3

REPORT INFORMATION
  Report Type: Spontaneous
  Country: US (occurrence: US)
  Receive Date: 20210903
  Receipt Date: 20210903
  Transmission Date: 20211014
  Serious: No
  Sender: FDA-Public Use
  Company Number: None

PATIENT
  Age: 17 Year
  Sex: Female
  Weight: 52.65 kg

DRUGS (1)
  1. SINGULAIR [Suspect]
     Active Substance: MONTELUKAST SODIUM
     Indication: RHINITIS ALLERGIC
     Route: 048
     Dates: start: 20200218, end: 20200303

REACTIONS (9)
  - Depressed level of consciousness [None]
  - Anxiety [None]
  - Abnormal behaviour [None]
  - Nightmare [None]
  - Thinking abnormal [None]
  - Fatigue [None]
  - Delirium [None]
  - Restlessness [None]
  - Mood altered [None]

NARRATIVE: CASE EVENT DATE: 20200218
